FAERS Safety Report 10199714 (Version 1)
Quarter: 2014Q2

REPORT INFORMATION
  Report Type: Spontaneous
  Country: US (occurrence: US)
  Receive Date: 20140527
  Receipt Date: 20140527
  Transmission Date: 20141212
  Serious: No
  Sender: FDA-Public Use
  Company Number: US-009507513-1405USA009908

PATIENT
  Sex: Male

DRUGS (2)
  1. DR. SCHOLL^S INGROWN TOENAIL PAIN RELIEVER [Suspect]
     Indication: PRODUCT USED FOR UNKNOWN INDICATION
     Dosage: UNKNOWN
     Route: 061
     Dates: start: 2013
  2. DR. SCHOLL^S INGROWN TOENAIL PAIN RELIEVER [Suspect]
     Dosage: UNKNOWN
     Route: 061
     Dates: start: 201305

REACTIONS (2)
  - Wrong technique in drug usage process [Unknown]
  - Product adhesion issue [Unknown]
